FAERS Safety Report 5068923-0 (Version None)
Quarter: 2006Q3

REPORT INFORMATION
  Report Type: 
  Country: None (occurrence: None)
  Receive Date: 20060728
  Receipt Date: 20060713
  Transmission Date: 20061208
  Serious: Yes (Hospitalization)
  Sender: FDA-Public Use
  Company Number: AU200605003464

PATIENT
  Age: 66 Year
  Sex: Male

DRUGS (8)
  1. ALIMTA [Suspect]
     Indication: MESOTHELIOMA
  2. CISPLATIN [Concomitant]
  3. DEXAMETHASONE [Concomitant]
  4. CYANOCOBALAMIN [Concomitant]
  5. FOLIC ACID [Concomitant]
  6. MICARDIS [Concomitant]
  7. METOPROLOL TARTRATE [Concomitant]
  8. HYDROCHLOROTHIAZIDE [Concomitant]

REACTIONS (7)
  - ADVERSE DRUG REACTION [None]
  - BRONCHOSPASM [None]
  - EJECTION FRACTION DECREASED [None]
  - FLUID OVERLOAD [None]
  - OXYGEN SATURATION DECREASED [None]
  - PULMONARY OEDEMA [None]
  - TACHYCARDIA [None]
